FAERS Safety Report 15046612 (Version 3)
Quarter: 2018Q4

REPORT INFORMATION
  Report Type: Spontaneous
  Country: FR (occurrence: FR)
  Receive Date: 20180621
  Receipt Date: 20181030
  Transmission Date: 20190204
  Serious: Yes (Other)
  Sender: FDA-Public Use
  Company Number: FR-TEVA-2018-FR-911241

PATIENT
  Age: 29 Year
  Sex: Female

DRUGS (5)
  1. LOXAPINE (SUCCINATE DE) [Concomitant]
     Active Substance: LOXAPINE SUCCINATE
     Dosage: 50 GTT DAILY;
     Route: 065
  2. TOPIRAMATE. [Suspect]
     Active Substance: TOPIRAMATE
     Indication: EATING DISORDER
     Route: 048
     Dates: start: 20180312
  3. CHLORHYDRATE DE FLUOXETINE [Suspect]
     Active Substance: FLUOXETINE HYDROCHLORIDE
     Indication: HYPERPHAGIA
     Dosage: 80 MILLIGRAM DAILY;
     Route: 048
     Dates: end: 201806
  4. OXAZEPAM. [Concomitant]
     Active Substance: OXAZEPAM
     Dosage: 125 MILLIGRAM DAILY;
     Route: 065
  5. LEVOTHYROX [Concomitant]
     Active Substance: LEVOTHYROXINE
     Route: 065

REACTIONS (2)
  - Exophthalmos [Recovered/Resolved]
  - Tremor [Recovered/Resolved]

NARRATIVE: CASE EVENT DATE: 201804
